FAERS Safety Report 4712497-8 (Version None)
Quarter: 2005Q3

REPORT INFORMATION
  Report Type: 
  Country: None (occurrence: None)
  Receive Date: 20050711
  Receipt Date: 20050701
  Transmission Date: 20060218
  Serious: Yes (Other)
  Sender: FDA-Public Use
  Company Number: US-GDP-0512079

PATIENT
  Sex: Male

DRUGS (1)
  1. METROGEL [Suspect]
     Dates: start: 20000101

REACTIONS (1)
  - NEUROPATHY PERIPHERAL [None]
